FAERS Safety Report 4286852-7 (Version None)
Quarter: 2004Q1

REPORT INFORMATION
  Report Type: 
  Country: None (occurrence: None)
  Receive Date: 20040206
  Receipt Date: 20030921
  Transmission Date: 20041129
  Serious: Yes (Hospitalization, Other)
  Sender: FDA-Public Use
  Company Number: PHFR2003GB03674

PATIENT
  Age: 51 Year
  Sex: Female

DRUGS (5)
  1. CLOZARIL [Suspect]
     Indication: PSYCHOTIC DISORDER
     Dosage: 100 MG/DAY
     Route: 048
     Dates: start: 20030901, end: 20040117
  2. CLOZARIL [Suspect]
     Dosage: 150MG/DAY
     Route: 048
     Dates: end: 20031014
  3. CLOZARIL [Suspect]
     Dosage: 175MG/DAY
     Route: 048
     Dates: start: 20031015, end: 20040117
  4. TRIMETHOPRIM [Concomitant]
  5. INSULIN [Concomitant]
     Indication: BLOOD GLUCOSE INCREASED

REACTIONS (14)
  - BACK PAIN [None]
  - BLOOD GLUCOSE INCREASED [None]
  - BODY TEMPERATURE INCREASED [None]
  - CHEST PAIN [None]
  - DIABETES MELLITUS [None]
  - DIABETES MELLITUS INADEQUATE CONTROL [None]
  - DIARRHOEA [None]
  - MALAISE [None]
  - MUSCULOSKELETAL PAIN [None]
  - PAIN [None]
  - SALIVARY HYPERSECRETION [None]
  - URINARY TRACT INFECTION [None]
  - VIRAL INFECTION [None]
  - WEIGHT INCREASED [None]
